FAERS Safety Report 23236454 (Version 13)
Quarter: 2025Q1

REPORT INFORMATION
  Report Type: Report from Study
  Country: KR (occurrence: KR)
  Receive Date: 20231128
  Receipt Date: 20250213
  Transmission Date: 20250409
  Serious: Yes (Hospitalization, Other)
  Sender: NOVARTIS
  Company Number: KR-002147023-NVSC2023KR230921

PATIENT
  Sex: Female
  Weight: 61.3 kg

DRUGS (52)
  1. RYDAPT [Suspect]
     Active Substance: MIDOSTAURIN
     Indication: Acute myeloid leukaemia
     Dosage: 50 MG, BID
     Route: 048
     Dates: start: 20230908, end: 20230921
  2. RYDAPT [Suspect]
     Active Substance: MIDOSTAURIN
     Dosage: 50 MG, BID
     Route: 048
     Dates: start: 20231108, end: 20231121
  3. RYDAPT [Suspect]
     Active Substance: MIDOSTAURIN
     Dosage: 50 MG, BID
     Route: 048
     Dates: start: 20231213, end: 20231226
  4. DAUNORUBICIN HYDROCHLORIDE [Concomitant]
     Active Substance: DAUNORUBICIN HYDROCHLORIDE
     Indication: Acute myeloid leukaemia
     Route: 042
     Dates: start: 20230901, end: 20230903
  5. CYTARABINE [Concomitant]
     Active Substance: CYTARABINE
     Indication: Acute myeloid leukaemia
     Route: 042
     Dates: start: 20230901, end: 20230907
  6. CYTARABINE [Concomitant]
     Active Substance: CYTARABINE
     Route: 042
     Dates: start: 20231028, end: 20231028
  7. CYTARABINE [Concomitant]
     Active Substance: CYTARABINE
     Route: 042
     Dates: start: 20231028, end: 20231101
  8. CYTARABINE [Concomitant]
     Active Substance: CYTARABINE
     Route: 042
     Dates: start: 20231030, end: 20231030
  9. CYTARABINE [Concomitant]
     Active Substance: CYTARABINE
     Route: 042
     Dates: start: 20231101, end: 20231101
  10. CYTARABINE [Concomitant]
     Active Substance: CYTARABINE
     Route: 042
     Dates: start: 20231206, end: 20231210
  11. CYTARABINE [Concomitant]
     Active Substance: CYTARABINE
     Route: 042
     Dates: start: 20231206, end: 20231206
  12. CYTARABINE [Concomitant]
     Active Substance: CYTARABINE
     Route: 042
     Dates: start: 20231208, end: 20231208
  13. CYTARABINE [Concomitant]
     Active Substance: CYTARABINE
     Route: 042
     Dates: start: 20231210, end: 20231210
  14. ACYCLOVIR [Concomitant]
     Active Substance: ACYCLOVIR
     Indication: Viral infection
     Route: 048
     Dates: start: 20230901, end: 20230929
  15. DIABEX [Concomitant]
     Active Substance: METFORMIN HYDROCHLORIDE
     Indication: Diabetes mellitus
     Route: 048
     Dates: start: 20230927
  16. LANSOPRAZOLE [Concomitant]
     Active Substance: LANSOPRAZOLE
     Indication: Gastritis prophylaxis
     Route: 048
     Dates: start: 20230828, end: 20230924
  17. LEXAPRO [Concomitant]
     Active Substance: ESCITALOPRAM OXALATE
     Indication: Depression
     Route: 048
     Dates: start: 20230830
  18. MAGNESIUM HYDROXIDE [Concomitant]
     Active Substance: MAGNESIUM HYDROXIDE
     Indication: Dyschezia
     Route: 048
     Dates: start: 20230828, end: 20230924
  19. MAGNESIUM HYDROXIDE [Concomitant]
     Active Substance: MAGNESIUM HYDROXIDE
     Route: 048
     Dates: start: 20231027, end: 20231215
  20. MAGNESIUM HYDROXIDE [Concomitant]
     Active Substance: MAGNESIUM HYDROXIDE
     Route: 048
     Dates: start: 20231226
  21. Mypol [Concomitant]
     Indication: Pain
     Route: 048
     Dates: start: 20230914, end: 20230915
  22. Mypol [Concomitant]
     Route: 048
     Dates: start: 20231006, end: 20231007
  23. NOXAFIL [Concomitant]
     Active Substance: POSACONAZOLE
     Indication: Fungal infection
     Route: 048
     Dates: start: 20230901, end: 20230929
  24. LINAGLIPTIN [Concomitant]
     Active Substance: LINAGLIPTIN
     Indication: Diabetes mellitus
     Route: 048
     Dates: start: 20230828
  25. TRAZODONE HYDROCHLORIDE [Concomitant]
     Active Substance: TRAZODONE HYDROCHLORIDE
     Indication: Depression
     Route: 048
     Dates: start: 20230830
  26. ALLOPURINOL [Concomitant]
     Active Substance: ALLOPURINOL
     Indication: Tumour lysis syndrome
     Route: 048
     Dates: start: 20230830, end: 20230907
  27. ALOXI [Concomitant]
     Active Substance: PALONOSETRON HYDROCHLORIDE
     Indication: Nausea
     Route: 042
     Dates: start: 20230901, end: 20230901
  28. ALOXI [Concomitant]
     Active Substance: PALONOSETRON HYDROCHLORIDE
     Indication: Acute myeloid leukaemia
     Route: 042
     Dates: start: 20230901, end: 20231007
  29. ALOXI [Concomitant]
     Active Substance: PALONOSETRON HYDROCHLORIDE
     Route: 042
     Dates: start: 20230903, end: 20230903
  30. ALOXI [Concomitant]
     Active Substance: PALONOSETRON HYDROCHLORIDE
     Route: 042
     Dates: start: 20230905, end: 20230905
  31. ALOXI [Concomitant]
     Active Substance: PALONOSETRON HYDROCHLORIDE
     Route: 042
     Dates: start: 20230907, end: 20230907
  32. ALOXI [Concomitant]
     Active Substance: PALONOSETRON HYDROCHLORIDE
     Route: 042
     Dates: start: 20231028, end: 20231028
  33. ALOXI [Concomitant]
     Active Substance: PALONOSETRON HYDROCHLORIDE
     Route: 042
     Dates: start: 20231028, end: 20231101
  34. ALOXI [Concomitant]
     Active Substance: PALONOSETRON HYDROCHLORIDE
     Route: 042
     Dates: start: 20231030, end: 20231030
  35. ALOXI [Concomitant]
     Active Substance: PALONOSETRON HYDROCHLORIDE
     Route: 042
     Dates: start: 20231101, end: 20231101
  36. ALOXI [Concomitant]
     Active Substance: PALONOSETRON HYDROCHLORIDE
     Route: 042
     Dates: start: 20231206, end: 20231210
  37. ALOXI [Concomitant]
     Active Substance: PALONOSETRON HYDROCHLORIDE
     Route: 042
     Dates: start: 20231206, end: 20231206
  38. ALOXI [Concomitant]
     Active Substance: PALONOSETRON HYDROCHLORIDE
     Route: 042
     Dates: start: 20231208, end: 20231208
  39. ALOXI [Concomitant]
     Active Substance: PALONOSETRON HYDROCHLORIDE
     Route: 042
     Dates: start: 20231210, end: 20231210
  40. FASTURTEC [Concomitant]
     Active Substance: RASBURICASE
     Indication: Hyperuricaemia
     Route: 042
     Dates: start: 20230901, end: 20230901
  41. METOCLOPRAMIDE HYDROCHLORIDE [Concomitant]
     Active Substance: METOCLOPRAMIDE HYDROCHLORIDE
     Indication: Nausea
     Route: 042
     Dates: start: 20230904, end: 20230908
  42. MEPERIDINE HYDROCHLORIDE [Concomitant]
     Active Substance: MEPERIDINE HYDROCHLORIDE
     Indication: Prophylaxis
     Route: 030
     Dates: start: 20230914, end: 20230914
  43. MEPERIDINE HYDROCHLORIDE [Concomitant]
     Active Substance: MEPERIDINE HYDROCHLORIDE
     Route: 030
     Dates: start: 20231006, end: 20231006
  44. DIFLUCAN [Concomitant]
     Active Substance: FLUCONAZOLE
     Indication: Fungal infection
     Route: 065
     Dates: start: 20231108, end: 20231121
  45. DIFLUCAN [Concomitant]
     Active Substance: FLUCONAZOLE
     Route: 048
     Dates: start: 20231226, end: 20231229
  46. TAPOCIN [Concomitant]
     Indication: Pneumonia
     Route: 042
     Dates: start: 20230901, end: 20230918
  47. PIPERACILLIN SODIUM\TAZOBACTAM SODIUM [Concomitant]
     Active Substance: PIPERACILLIN SODIUM\TAZOBACTAM SODIUM
     Indication: Prophylaxis
     Route: 042
     Dates: start: 20231117, end: 20231117
  48. PIPERACILLIN SODIUM\TAZOBACTAM SODIUM [Concomitant]
     Active Substance: PIPERACILLIN SODIUM\TAZOBACTAM SODIUM
     Route: 042
     Dates: start: 20231118, end: 20231120
  49. PIPERACILLIN SODIUM\TAZOBACTAM SODIUM [Concomitant]
     Active Substance: PIPERACILLIN SODIUM\TAZOBACTAM SODIUM
     Route: 042
     Dates: start: 20231121, end: 20231121
  50. MEGACE F [Concomitant]
     Indication: Decreased appetite
     Route: 065
     Dates: start: 20231118, end: 20231125
  51. CEFTRIAXONE [Concomitant]
     Active Substance: CEFTRIAXONE
     Indication: Prophylaxis
     Route: 042
     Dates: start: 20231208, end: 20231211
  52. NOLTEC [Concomitant]
     Indication: Prophylaxis
     Route: 048
     Dates: start: 20231227, end: 20231228

REACTIONS (8)
  - Febrile neutropenia [Recovered/Resolved]
  - Abdominal pain [Recovered/Resolved]
  - Carpal tunnel syndrome [Recovering/Resolving]
  - Neutropenia [Recovered/Resolved]
  - Febrile neutropenia [Recovered/Resolved]
  - Thrombocytopenia [Recovered/Resolved]
  - Pyrexia [Recovered/Resolved]
  - Pruritus [Recovered/Resolved]

NARRATIVE: CASE EVENT DATE: 20230908
